FAERS Safety Report 7343659-1 (Version None)
Quarter: 2011Q1

REPORT INFORMATION
  Report Type: 
  Country: None (occurrence: None)
  Receive Date: 20110310
  Receipt Date: 20100914
  Transmission Date: 20110831
  Serious: No
  Sender: FDA-Public Use
  Company Number: A0881057A

PATIENT
  Age: 52 Year
  Sex: Female

DRUGS (2)
  1. NICORETTE (MINT) [Suspect]
  2. NICORETTE [Suspect]

REACTIONS (6)
  - OVERDOSE [None]
  - INTENTIONAL DRUG MISUSE [None]
  - ABDOMINAL PAIN UPPER [None]
  - DIZZINESS [None]
  - DRUG ADMINISTRATION ERROR [None]
  - NAUSEA [None]
